FAERS Safety Report 8990904 (Version 1)
Quarter: 2012Q4

REPORT INFORMATION
  Report Type: Spontaneous
  Country: US (occurrence: None)
  Receive Date: 20121220
  Receipt Date: 20121220
  Transmission Date: 20130627
  Serious: Yes (Life-Threatening, Hospitalization)
  Sender: FDA-Public Use
  Company Number: CL-456-2012

PATIENT
  Age: 24 Year
  Sex: Male

DRUGS (9)
  1. ONDANSETRON [Suspect]
     Indication: ACUTE GASTROENTERITIS
     Route: 048
  2. OFLOXACIN [Concomitant]
  3. ORNIDAZOLE [Concomitant]
  4. MULTIVITAMINS [Concomitant]
  5. RIFAMPICIN [Concomitant]
  6. ISONIAZID [Concomitant]
  7. ETHAMBUTOL [Concomitant]
  8. PYRAZINAMIDE [Concomitant]
  9. COTRIMOXAZOLE [Concomitant]

REACTIONS (1)
  - Toxic epidermal necrolysis [None]
